FAERS Safety Report 4477313-0 (Version None)
Quarter: 2004Q4

REPORT INFORMATION
  Report Type: 
  Country: None (occurrence: None)
  Receive Date: 20041013
  Receipt Date: 20040929
  Transmission Date: 20050328
  Serious: No
  Sender: FDA-Public Use
  Company Number: 2004AP05049

PATIENT
  Age: 71 Year
  Sex: Male

DRUGS (2)
  1. OMEPRAL [Suspect]
  2. LANSOPRAZOLE [Concomitant]

REACTIONS (7)
  - ASCITES [None]
  - GASTRIC CANCER [None]
  - HAEMODIALYSIS [None]
  - NEPHRITIS INTERSTITIAL [None]
  - PAIN [None]
  - PLEURAL EFFUSION [None]
  - RENAL FAILURE ACUTE [None]
